FAERS Safety Report 12467202 (Version 2)
Quarter: 2016Q3

REPORT INFORMATION
  Report Type: Spontaneous
  Country: GB (occurrence: GB)
  Receive Date: 20160615
  Receipt Date: 20160715
  Transmission Date: 20161109
  Serious: Yes (Death, Other)
  Sender: FDA-Public Use
  Company Number: GB-ROCHE-1775741

PATIENT
  Age: 84 Year
  Sex: Male
  Weight: 62.1 kg

DRUGS (4)
  1. ACTILYSE [Suspect]
     Active Substance: ALTEPLASE
     Indication: PULMONARY EMBOLISM
     Route: 042
     Dates: start: 20160328
  2. PARACETAMOL [Concomitant]
     Active Substance: ACETAMINOPHEN
  3. MESALAZINE [Concomitant]
     Active Substance: MESALAMINE
  4. DALTEPARIN [Suspect]
     Active Substance: DALTEPARIN
     Indication: PULMONARY EMBOLISM
     Dosage: 12500 U
     Route: 058
     Dates: start: 20160326, end: 20160328

REACTIONS (3)
  - Cardiac tamponade [Fatal]
  - Pericardial effusion [Not Recovered/Not Resolved]
  - Cardiac arrest [Not Recovered/Not Resolved]

NARRATIVE: CASE EVENT DATE: 20160328
